FAERS Safety Report 13667454 (Version 2)
Quarter: 2017Q2

REPORT INFORMATION
  Report Type: Spontaneous
  Country: SK (occurrence: SK)
  Receive Date: 20170620
  Receipt Date: 20170627
  Transmission Date: 20170830
  Serious: Yes (Hospitalization)
  Sender: FDA-Public Use
  Company Number: SK-B.I. PHARMACEUTICALS,INC./RIDGEFIELD-2017-BI-033423

PATIENT
  Age: 69 Year
  Sex: Male

DRUGS (4)
  1. PRADAXA [Suspect]
     Active Substance: DABIGATRAN ETEXILATE MESYLATE
     Indication: ATRIAL FIBRILLATION
  2. METOPROLOL. [Concomitant]
     Active Substance: METOPROLOL
     Indication: PRODUCT USED FOR UNKNOWN INDICATION
     Route: 065
  3. PERINDOPRIL/ INDAPAMID [Concomitant]
     Indication: PRODUCT USED FOR UNKNOWN INDICATION
     Route: 065
  4. PRADAXA [Suspect]
     Active Substance: DABIGATRAN ETEXILATE MESYLATE
     Indication: CEREBROVASCULAR ACCIDENT PROPHYLAXIS
     Route: 048
     Dates: start: 2011, end: 20160122

REACTIONS (1)
  - Cerebrovascular accident [Recovering/Resolving]

NARRATIVE: CASE EVENT DATE: 20160122
